FAERS Safety Report 5735601-1 (Version None)
Quarter: 2008Q2

REPORT INFORMATION
  Report Type: 
  Country: None (occurrence: None)
  Receive Date: 20080512
  Receipt Date: 20080502
  Transmission Date: 20081010
  Serious: Yes (Hospitalization, Other)
  Sender: FDA-Public Use
  Company Number: US-AMGEN-STX205903

PATIENT
  Sex: Female
  Weight: 136.2 kg

DRUGS (15)
  1. ENBREL [Suspect]
     Indication: PSORIATIC ARTHROPATHY
     Route: 058
     Dates: start: 20060101
  2. AMARYL [Concomitant]
     Route: 048
  3. COUMADIN [Concomitant]
  4. LASIX [Concomitant]
  5. K-DUR [Concomitant]
  6. PERCOCET [Concomitant]
  7. MYCOSTATIN [Concomitant]
     Route: 050
  8. ASPIRIN [Concomitant]
  9. PAXIL [Concomitant]
  10. ALLEGRA [Concomitant]
  11. LYRICA [Concomitant]
  12. TYLENOL [Concomitant]
  13. CRESTOR [Concomitant]
  14. FOLIC ACID [Concomitant]
  15. DIFLUCAN [Concomitant]
     Dates: start: 20070920

REACTIONS (5)
  - AORTIC STENOSIS [None]
  - ATELECTASIS [None]
  - CARDIAC MURMUR [None]
  - CORONARY ARTERY DISEASE [None]
  - HYPERDYNAMIC PRECORDIUM [None]
